FAERS Safety Report 13792631 (Version 8)
Quarter: 2018Q2

REPORT INFORMATION
  Report Type: Spontaneous
  Country: DE (occurrence: DE)
  Receive Date: 20170726
  Receipt Date: 20180626
  Transmission Date: 20180711
  Serious: Yes (Hospitalization, Other)
  Sender: FDA-Public Use
  Company Number: DE-BIOGEN-2017BI00425691

PATIENT
  Age: 4 Month
  Sex: Male
  Weight: 9.1 kg

DRUGS (9)
  1. SPINRAZA [Suspect]
     Active Substance: NUSINERSEN
     Indication: SPINAL MUSCULAR ATROPHY
     Dosage: LOADING DOSE FOR THE FIRST 4 DOSES, AND THEN MAINTENANCE DOSE FOR THE EVERY 4 MONTHS DOSES
     Route: 037
     Dates: start: 20170213
  2. SPINRAZA [Suspect]
     Active Substance: NUSINERSEN
     Route: 037
     Dates: start: 20170228
  3. SPINRAZA [Suspect]
     Active Substance: NUSINERSEN
     Route: 037
     Dates: start: 20170413
  4. SPINRAZA [Suspect]
     Active Substance: NUSINERSEN
     Route: 037
     Dates: start: 20180111
  5. VITAMIN D [Concomitant]
     Active Substance: CHOLECALCIFEROL
     Indication: PROPHYLAXIS
     Route: 065
  6. SPINRAZA [Suspect]
     Active Substance: NUSINERSEN
     Route: 037
     Dates: start: 201708, end: 201708
  7. SPINRAZA [Suspect]
     Active Substance: NUSINERSEN
     Route: 037
     Dates: start: 20180517
  8. SPINRAZA [Suspect]
     Active Substance: NUSINERSEN
     Route: 037
     Dates: start: 20170316
  9. VIGANTOLETTE [Concomitant]
     Indication: PRODUCT USED FOR UNKNOWN INDICATION
     Route: 065
     Dates: start: 20161118

REACTIONS (9)
  - Hydrocephalus [Recovered/Resolved]
  - Upper respiratory tract infection [Recovered/Resolved]
  - Joint contracture [Unknown]
  - Escherichia infection [Recovered/Resolved]
  - Bronchiolitis [Recovered/Resolved]
  - Staphylococcal infection [Recovered/Resolved]
  - Scoliosis [Unknown]
  - Bacillus infection [Unknown]
  - Foot deformity [Not Recovered/Not Resolved]

NARRATIVE: CASE EVENT DATE: 20170403
